FAERS Safety Report 4427639-1 (Version None)
Quarter: 2004Q3

REPORT INFORMATION
  Report Type: 
  Country: None (occurrence: None)
  Receive Date: 20040817
  Receipt Date: 20040813
  Transmission Date: 20050211
  Serious: Yes (Death)
  Sender: FDA-Public Use
  Company Number: JP-JNJFOC-20040804490

PATIENT
  Age: 40 Year
  Sex: Male

DRUGS (3)
  1. ITRACONAZOLE [Suspect]
     Route: 049
  2. FLUCONAZOLE [Suspect]
     Route: 042
  3. AMPHOTERICIN B [Concomitant]
     Route: 042

REACTIONS (1)
  - SYSTEMIC CANDIDA [None]
